FAERS Safety Report 6422875-7 (Version None)
Quarter: 2009Q4

REPORT INFORMATION
  Report Type: 
  Country: None (occurrence: None)
  Receive Date: 20091102
  Receipt Date: 20091020
  Transmission Date: 20100525
  Serious: Yes (Hospitalization)
  Sender: FDA-Public Use
  Company Number: SE-ROCHE-663949

PATIENT
  Age: 26 Year
  Sex: Female

DRUGS (3)
  1. CELLCEPT [Suspect]
     Route: 065
     Dates: start: 20090501
  2. PREDNISOLONE [Concomitant]
  3. PROGRAF [Concomitant]

REACTIONS (4)
  - BLOOD CREATININE INCREASED [None]
  - HYPOKALAEMIA [None]
  - HYPOMAGNESAEMIA [None]
  - MYALGIA [None]
